FAERS Safety Report 8336309-9 (Version None)
Quarter: 2012Q2

REPORT INFORMATION
  Report Type: 
  Country: None (occurrence: None)
  Receive Date: 20120504
  Receipt Date: 20120425
  Transmission Date: 20120825
  Serious: Yes (Hospitalization)
  Sender: FDA-Public Use
  Company Number: PHEH2012US008807

PATIENT
  Sex: Male

DRUGS (12)
  1. DEPAKOTE [Concomitant]
     Dosage: 125 MG, UNK
  2. VITAMIN B12 + FOLIC ACID [Concomitant]
  3. EXJADE [Suspect]
     Indication: IRON OVERLOAD
     Dosage: 2000 MG, QD
     Route: 048
  4. TYLENOL PM, EXTRA STRENGTH [Concomitant]
  5. CITALOPRAM HYDROBROMIDE [Concomitant]
     Dosage: 40 MG, UNK
  6. AMITRIPTYLINE HCL [Concomitant]
     Dosage: 25 MG, UNK
  7. KLONOPIN [Concomitant]
     Dosage: 2 MG, UNK
  8. HALDOL [Concomitant]
     Dosage: 5 MG/ML, UNK
  9. METOPROLOL TARTRATE [Concomitant]
     Dosage: 50 MG, UNK
  10. PANTOPRAZOLE [Concomitant]
     Dosage: 20 MG, UNK
  11. HALDOL [Concomitant]
     Dosage: 100 MG/ML, UNK
  12. DIPHENHYDRAMINE HCL [Concomitant]
     Dosage: 25 MG, UNK

REACTIONS (4)
  - RENAL FAILURE ACUTE [None]
  - AMMONIA INCREASED [None]
  - HEPATIC FUNCTION ABNORMAL [None]
  - HYPERSOMNIA [None]
